FAERS Safety Report 13045129 (Version 1)
Quarter: 2016Q4

REPORT INFORMATION
  Report Type: Spontaneous
  Country: FR (occurrence: FR)
  Receive Date: 20161220
  Receipt Date: 20161220
  Transmission Date: 20170207
  Serious: Yes (Hospitalization, Other)
  Sender: FDA-Public Use
  Company Number: FR-009507513-1612FRA008815

PATIENT
  Sex: Female

DRUGS (1)
  1. VARNOLINE CONTINU [Suspect]
     Active Substance: DESOGESTREL\ETHINYL ESTRADIOL
     Indication: CONTRACEPTION
     Dosage: 1 TABLET, QD
     Route: 048
     Dates: start: 20160801, end: 20160915

REACTIONS (2)
  - Cerebellar syndrome [Recovered/Resolved]
  - Ischaemic stroke [Recovered/Resolved]
